FAERS Safety Report 17944180 (Version 1)
Quarter: 2020Q2

REPORT INFORMATION
  Report Type: Spontaneous
  Country: FR (occurrence: FR)
  Receive Date: 20200625
  Receipt Date: 20200625
  Transmission Date: 20200714
  Serious: Yes (Other)
  Sender: FDA-Public Use
  Company Number: NVSC2020FR177167

PATIENT
  Age: 82 Year
  Sex: Male
  Weight: 65 kg

DRUGS (2)
  1. CILOXADEX [Suspect]
     Active Substance: CIPROFLOXACIN HYDROCHLORIDE\DEXAMETHASONE
     Indication: EAR INFECTION
     Dosage: 10 DRP, QD
     Route: 001
     Dates: start: 20200528, end: 20200529
  2. COUMADINE [Suspect]
     Active Substance: WARFARIN SODIUM
     Indication: PAROXYSMAL ARRHYTHMIA
     Dosage: UNK
     Route: 048

REACTIONS (2)
  - Paroxysmal arrhythmia [Not Recovered/Not Resolved]
  - Dizziness [Not Recovered/Not Resolved]

NARRATIVE: CASE EVENT DATE: 20200528
